FAERS Safety Report 15883829 (Version 1)
Quarter: 2019Q1

REPORT INFORMATION
  Report Type: Spontaneous
  Country: US (occurrence: US)
  Receive Date: 20190129
  Receipt Date: 20190129
  Transmission Date: 20190417
  Serious: Yes (Hospitalization, Other)
  Sender: FDA-Public Use
  Company Number: US-TORRENT-00007540

PATIENT
  Age: 55 Year
  Sex: Female

DRUGS (5)
  1. HYDROXYZINE [Concomitant]
     Active Substance: HYDROXYZINE HYDROCHLORIDE
     Indication: ALCOHOL USE DISORDER
     Dosage: AS NEEDED
  2. QUETIAPINE. [Suspect]
     Active Substance: QUETIAPINE
     Indication: BORDERLINE PERSONALITY DISORDER
  3. AMITRIPTYLINE [Suspect]
     Active Substance: AMITRIPTYLINE
     Indication: BORDERLINE PERSONALITY DISORDER
     Dosage: AT BEDTIME
  4. LAMOTRIGINE. [Concomitant]
     Active Substance: LAMOTRIGINE
     Indication: ANXIETY DISORDER
     Dosage: AT BEDTIME
  5. RISPERIDONE. [Concomitant]
     Active Substance: RISPERIDONE
     Indication: ALCOHOL USE DISORDER
     Dosage: DEPOT INJECTIONS

REACTIONS (1)
  - Colitis ischaemic [Recovered/Resolved]
